FAERS Safety Report 8481963-4 (Version None)
Quarter: 2012Q2

REPORT INFORMATION
  Report Type: 
  Country: None (occurrence: None)
  Receive Date: 20120626
  Receipt Date: 20120626
  Transmission Date: 20120825
  Serious: Yes (Disabling)
  Sender: FDA-Public Use
  Company Number: None

PATIENT
  Age: 14 Year
  Sex: Female
  Weight: 83.0083 kg

DRUGS (1)
  1. ACCUTANE [Suspect]
     Indication: ACNE
     Dosage: DAILY PO
     Route: 048

REACTIONS (10)
  - GASTRIC DISORDER [None]
  - ARTHRALGIA [None]
  - DEPRESSION [None]
  - FATIGUE [None]
  - ANXIETY [None]
  - NAUSEA [None]
  - DYSPEPSIA [None]
  - ACTIVITIES OF DAILY LIVING IMPAIRED [None]
  - MYALGIA [None]
  - IMPAIRED WORK ABILITY [None]
